FAERS Safety Report 26023902 (Version 1)
Quarter: 2025Q4

REPORT INFORMATION
  Report Type: Spontaneous
  Country: US (occurrence: US)
  Receive Date: 20251111
  Receipt Date: 20251111
  Transmission Date: 20260118
  Serious: No
  Sender: BEIGENE
  Company Number: US-BEIGENE-BGN-2025-018107

PATIENT

DRUGS (2)
  1. BRUKINSA [Suspect]
     Active Substance: ZANUBRUTINIB
     Indication: Product used for unknown indication
     Dosage: UNK
  2. BRUKINSA [Suspect]
     Active Substance: ZANUBRUTINIB
     Dosage: UNK

REACTIONS (1)
  - Spinal disorder [Unknown]
